FAERS Safety Report 7802760-6 (Version None)
Quarter: 2011Q4

REPORT INFORMATION
  Report Type: 
  Country: None (occurrence: None)
  Receive Date: 20111007
  Receipt Date: 20111005
  Transmission Date: 20120403
  Serious: Yes (Hospitalization, Congenital Anomaly, Other)
  Sender: FDA-Public Use
  Company Number: GXKR2011DE02979

PATIENT

DRUGS (3)
  1. AZATHIOPRINE [Suspect]
     Dosage: MATERNAL DOSE: 200 [MG/D (-150)]
     Route: 064
  2. FOLIC ACID [Concomitant]
     Dosage: MATERNAL DOSE: 0.4 [MG/D ]
     Route: 064
  3. ATENOLOL [Suspect]
     Dosage: MATERNAL DOSE: 100 [MG/D ]
     Route: 064

REACTIONS (5)
  - ATRIAL SEPTAL DEFECT [None]
  - MATERNAL EXPOSURE DURING PREGNANCY [None]
  - SMALL FOR DATES BABY [None]
  - HYPOGLYCAEMIA [None]
  - CONGENITAL TRICUSPID VALVE INCOMPETENCE [None]
